FAERS Safety Report 19800854 (Version 1)
Quarter: 2021Q3

REPORT INFORMATION
  Report Type: Spontaneous
  Country: US (occurrence: US)
  Receive Date: 20210907
  Receipt Date: 20210907
  Transmission Date: 20211014
  Serious: No
  Sender: FDA-Public Use
  Company Number: US-009507513-2108USA005913

PATIENT
  Age: 60 Year
  Sex: Male

DRUGS (8)
  1. PREZISTA [Suspect]
     Active Substance: DARUNAVIR ETHANOLATE
     Dosage: UNK
     Dates: end: 20210814
  2. DIVIDOL [VIMINOL HYDROXYBENZOATE] [Suspect]
     Active Substance: VIMINOL P-HYDROXYBENZOATE
     Dosage: UNK
     Dates: start: 20210816
  3. NORVIR [Suspect]
     Active Substance: RITONAVIR
     Dosage: UNK
     Dates: start: 20210816
  4. PREZISTA [Suspect]
     Active Substance: DARUNAVIR ETHANOLATE
     Dosage: UNK
     Dates: start: 20210816
  5. PIFELTRO [Suspect]
     Active Substance: DORAVIRINE
     Dosage: UNK
     Route: 048
     Dates: end: 20210814
  6. PIFELTRO [Suspect]
     Active Substance: DORAVIRINE
     Dosage: UNK
     Dates: start: 20210816
  7. NORVIR [Suspect]
     Active Substance: RITONAVIR
     Dosage: UNK
     Dates: end: 20210814
  8. DIVIDOL [VIMINOL HYDROXYBENZOATE] [Suspect]
     Active Substance: VIMINOL P-HYDROXYBENZOATE
     Dosage: UNK
     Dates: end: 20210814

REACTIONS (1)
  - Product dose omission issue [Unknown]

NARRATIVE: CASE EVENT DATE: 20210814
